FAERS Safety Report 7494355-1 (Version None)
Quarter: 2011Q2

REPORT INFORMATION
  Report Type: 
  Country: None (occurrence: None)
  Receive Date: 20110520
  Receipt Date: 20110516
  Transmission Date: 20111010
  Serious: Yes (Other)
  Sender: FDA-Public Use
  Company Number: US-MERCK-1103USA01664

PATIENT
  Sex: Male

DRUGS (1)
  1. SINGULAIR [Suspect]
     Route: 048
     Dates: start: 20090101, end: 20100101

REACTIONS (3)
  - NEGATIVE THOUGHTS [None]
  - AFFECTIVE DISORDER [None]
  - SUICIDAL IDEATION [None]
